FAERS Safety Report 6335699-6 (Version None)
Quarter: 2009Q3

REPORT INFORMATION
  Report Type: 
  Country: None (occurrence: None)
  Receive Date: 20090828
  Receipt Date: 20090821
  Transmission Date: 20100115
  Serious: Yes (Other)
  Sender: FDA-Public Use
  Company Number: IPS_01679_2009

PATIENT
  Sex: Male

DRUGS (1)
  1. APOKYN [Suspect]
     Indication: PARKINSON'S DISEASE
     Dosage: (0.3 ML PRN, NOT TO EXCEED 4 DOSES PER SUBCUTANEOUS)
     Route: 058
     Dates: start: 20080813

REACTIONS (1)
  - RETINAL DETACHMENT [None]
